FAERS Safety Report 6939385-0 (Version None)
Quarter: 2010Q3

REPORT INFORMATION
  Report Type: 
  Country: None (occurrence: None)
  Receive Date: 20100819
  Receipt Date: 20100809
  Transmission Date: 20110219
  Serious: Yes (Disabling)
  Sender: FDA-Public Use
  Company Number: 2010SP043222

PATIENT
  Age: 52 Year
  Sex: Female

DRUGS (2)
  1. ASMANEX TWISTHALER [Suspect]
     Indication: ASTHMA
     Dosage: 440 MCG;BID;PO
     Route: 048
     Dates: start: 20100101, end: 20100806
  2. PROVENTIL-HFA [Suspect]
     Indication: PRODUCT USED FOR UNKNOWN INDICATION
     Dosage: PO
     Route: 048

REACTIONS (4)
  - AURICULAR SWELLING [None]
  - EAR DISCOMFORT [None]
  - EAR PAIN [None]
  - EAR PRURITUS [None]
